FAERS Safety Report 4314211-7 (Version None)
Quarter: 2004Q1

REPORT INFORMATION
  Report Type: 
  Country: None (occurrence: None)
  Receive Date: 20040308
  Receipt Date: 20040308
  Transmission Date: 20041129
  Serious: Yes (Hospitalization)
  Sender: FDA-Public Use
  Company Number: None

PATIENT
  Age: 82 Year
  Sex: Male
  Weight: 86 kg

DRUGS (17)
  1. FUROSEMIDE [Suspect]
     Indication: HYPERTENSION
     Dosage: 80 MG DAILY ORAL
     Route: 048
     Dates: start: 20030808, end: 20030811
  2. ACETAMINOPHEN [Concomitant]
  3. MECLIZINE [Concomitant]
  4. NTG SUBLINGUAL [Concomitant]
  5. ALBUTEROL [Concomitant]
  6. ASPIRIN [Concomitant]
  7. VITAMIN D [Concomitant]
  8. CALCIUM CARBONATE [Concomitant]
  9. DIGOXIN [Concomitant]
  10. FOSINOPRIL SODIUM [Concomitant]
  11. GLYBURIDE [Concomitant]
  12. IPRATROPIUM BROMIDE [Concomitant]
  13. ISOSORBIDE [Concomitant]
  14. NIACIN [Concomitant]
  15. SIMVASTATIN [Concomitant]
  16. RABEPRAZOLE SODIUM [Concomitant]
  17. SPIRONOLACTONE [Concomitant]

REACTIONS (10)
  - CELLULITIS [None]
  - DIARRHOEA [None]
  - FEELING HOT [None]
  - GOUT [None]
  - HYPERKALAEMIA [None]
  - NAUSEA [None]
  - OEDEMA PERIPHERAL [None]
  - PAIN [None]
  - PAIN IN EXTREMITY [None]
  - RENAL FAILURE ACUTE [None]
